FAERS Safety Report 10251674 (Version 4)
Quarter: 2015Q1

REPORT INFORMATION
  Report Type: Report from Study
  Country: US (occurrence: US)
  Receive Date: 20140623
  Receipt Date: 20150106
  Transmission Date: 20150720
  Serious: Yes (Hospitalization, Other)
  Sender: FDA-Public Use
  Company Number: US-BIOGENIDEC-2014BI058064

PATIENT
  Age: 65 Year
  Sex: Female

DRUGS (23)
  1. ASPIRIN ADULT LOW STRENGTH [Concomitant]
     Active Substance: ASPIRIN
  2. FISH OIL [Concomitant]
     Active Substance: FISH OIL
  3. CALTRATE 600 + D3 [Concomitant]
     Route: 048
  4. PREDNISONE. [Concomitant]
     Active Substance: PREDNISONE
     Route: 048
  5. SPIRIVA [Concomitant]
     Active Substance: TIOTROPIUM BROMIDE MONOHYDRATE
     Route: 055
  6. BACLOFEN. [Concomitant]
     Active Substance: BACLOFEN
     Route: 048
  7. ALPRAZOLAM. [Concomitant]
     Active Substance: ALPRAZOLAM
     Indication: ANXIETY
     Route: 048
  8. NITROFURANTOIN (MACROCRYSTALS) [Concomitant]
     Active Substance: NITROFURANTOIN
  9. LEVOTHYROXINE [Concomitant]
     Active Substance: LEVOTHYROXINE
     Route: 048
  10. AVONEX [Suspect]
     Active Substance: INTERFERON BETA-1A
     Indication: MULTIPLE SCLEROSIS
     Route: 030
     Dates: start: 2002, end: 201406
  11. AVONEX [Suspect]
     Active Substance: INTERFERON BETA-1A
     Indication: MULTIPLE SCLEROSIS
     Route: 030
     Dates: start: 201406
  12. METROGEL [Concomitant]
     Active Substance: METRONIDAZOLE
     Route: 061
  13. VITAMIN D3 [Concomitant]
     Active Substance: CHOLECALCIFEROL
  14. PRAVASTATIN [Concomitant]
     Active Substance: PRAVASTATIN\PRAVASTATIN SODIUM
     Route: 048
  15. VESICARE [Concomitant]
     Active Substance: SOLIFENACIN SUCCINATE
     Route: 048
  16. COENZYME Q10 [Concomitant]
     Active Substance: UBIDECARENONE
  17. AVONEX [Suspect]
     Active Substance: INTERFERON BETA-1A
     Indication: MULTIPLE SCLEROSIS
     Route: 030
     Dates: start: 20001222
  18. ALENDRONATE [Concomitant]
     Active Substance: ALENDRONATE SODIUM
     Route: 048
  19. ADVAIR DISKUS [Concomitant]
     Active Substance: FLUTICASONE PROPIONATE\SALMETEROL XINAFOATE
     Route: 055
  20. CRANBERRY. [Concomitant]
     Active Substance: CRANBERRY
  21. PROVENTIL HFA [Concomitant]
     Active Substance: ALBUTEROL SULFATE
     Indication: DYSPNOEA
     Route: 055
  22. FERROUS SULFATE [Concomitant]
     Active Substance: FERROUS SULFATE\FERROUS SULFATE, DRIED
     Route: 048
  23. IRON [Concomitant]
     Active Substance: IRON

REACTIONS (3)
  - Hepatic cancer metastatic [Unknown]
  - Multiple sclerosis [Unknown]
  - Colon cancer [Recovered/Resolved]

NARRATIVE: CASE EVENT DATE: 201307
